FAERS Safety Report 4768914-0 (Version None)
Quarter: 2005Q3

REPORT INFORMATION
  Report Type: 
  Country: None (occurrence: None)
  Receive Date: 20050914
  Receipt Date: 20050901
  Transmission Date: 20060218
  Serious: Yes (Other)
  Sender: FDA-Public Use
  Company Number: 2005123866

PATIENT
  Age: 69 Year
  Sex: Male
  Weight: 70 kg

DRUGS (3)
  1. LYRICA [Suspect]
     Indication: PERIPHERAL SENSORY NEUROPATHY
     Dosage: (2 IN 1 D), ORAL
     Route: 048
     Dates: start: 20050810, end: 20050817
  2. PROPRANOLOL HYDROCHLORIDE [Concomitant]
  3. GAVISCON ADVANCE (POTASSIUM BICARBONATE, SODIUM ALGINATE) [Concomitant]

REACTIONS (5)
  - ANXIETY [None]
  - DRUG WITHDRAWAL SYNDROME [None]
  - FATIGUE [None]
  - INSOMNIA [None]
  - THIRST [None]
